FAERS Safety Report 6121005-9 (Version None)
Quarter: 2009Q1

REPORT INFORMATION
  Report Type: 
  Country: None (occurrence: None)
  Receive Date: 20090317
  Receipt Date: 20090305
  Transmission Date: 20090719
  Serious: Yes (Other)
  Sender: FDA-Public Use
  Company Number: PHHY2009DE08361

PATIENT
  Age: 87 Year

DRUGS (1)
  1. ACLASTA [Suspect]
     Dosage: UNK
     Route: 051
     Dates: start: 20090304

REACTIONS (3)
  - CARDIAC DISORDER [None]
  - CARDIOVASCULAR INSUFFICIENCY [None]
  - DYSPNOEA [None]
